FAERS Safety Report 8278551-1 (Version None)
Quarter: 2012Q2

REPORT INFORMATION
  Report Type: 
  Country: None (occurrence: None)
  Receive Date: 20120412
  Receipt Date: 20110331
  Transmission Date: 20120825
  Serious: No
  Sender: FDA-Public Use
  Company Number: US-ASTRAZENECA-2011SE18337

PATIENT
  Age: 46 Year
  Sex: Female
  Weight: 64 kg

DRUGS (2)
  1. NEXIUM [Suspect]
     Indication: GASTROOESOPHAGEAL REFLUX DISEASE
     Route: 048
     Dates: start: 20010101
  2. ENOXAPARIN SODIUM [Concomitant]

REACTIONS (4)
  - DRUG DOSE OMISSION [None]
  - OESOPHAGEAL FOOD IMPACTION [None]
  - DYSPEPSIA [None]
  - GASTROOESOPHAGEAL REFLUX DISEASE [None]
